FAERS Safety Report 14366448 (Version 7)
Quarter: 2020Q1

REPORT INFORMATION
  Report Type: Report from Study
  Country: CO (occurrence: CO)
  Receive Date: 20180109
  Receipt Date: 20200227
  Transmission Date: 20200409
  Serious: Yes (Hospitalization)
  Sender: FDA-Public Use
  Company Number: PHHY2018CO000932

PATIENT
  Age: 60 Year
  Sex: Male
  Weight: 58 kg

DRUGS (2)
  1. TASIGNA [Suspect]
     Active Substance: NILOTINIB
     Dosage: 150 MG, Q12H
     Route: 048
     Dates: start: 201712
  2. TASIGNA [Suspect]
     Active Substance: NILOTINIB
     Indication: CHRONIC MYELOID LEUKAEMIA
     Dosage: 600 MG, QD (DAILY)
     Route: 048
     Dates: start: 20171114

REACTIONS (16)
  - Contusion [Recovered/Resolved]
  - Skin discolouration [Unknown]
  - Malaise [Unknown]
  - Weight decreased [Unknown]
  - Product packaging issue [Unknown]
  - Inappropriate schedule of product administration [Unknown]
  - Joint dislocation [Unknown]
  - Arthralgia [Unknown]
  - Limb discomfort [Unknown]
  - Splenomegaly [Unknown]
  - Pyrexia [Unknown]
  - Abnormal behaviour [Unknown]
  - Fear [Unknown]
  - Head discomfort [Unknown]
  - Psychiatric symptom [Unknown]
  - Palpitations [Unknown]

NARRATIVE: CASE EVENT DATE: 20180620
